FAERS Safety Report 9847501 (Version 1)
Quarter: 2014Q1

REPORT INFORMATION
  Report Type: Spontaneous
  Country: US (occurrence: US)
  Receive Date: 20140127
  Receipt Date: 20140127
  Transmission Date: 20141002
  Serious: Yes (Hospitalization)
  Sender: FDA-Public Use
  Company Number: US-JNJFOC-20140107974

PATIENT
  Age: 47 Year
  Sex: Male
  Weight: 136.08 kg

DRUGS (4)
  1. SUDAFED 24 HOUR TABLET [Suspect]
     Route: 048
  2. SUDAFED 24 HOUR TABLET [Suspect]
     Indication: ALLERGIC SINUSITIS
     Route: 048
     Dates: start: 20140109, end: 20140109
  3. LOSARTAN [Concomitant]
     Indication: BLOOD PRESSURE ABNORMAL
     Route: 065
  4. METFORMIN [Concomitant]
     Indication: DIABETES MELLITUS
     Route: 065
     Dates: start: 20111231

REACTIONS (1)
  - Intestinal obstruction [Recovering/Resolving]
